FAERS Safety Report 8441832-2 (Version None)
Quarter: 2012Q2

REPORT INFORMATION
  Report Type: 
  Country: None (occurrence: None)
  Receive Date: 20120615
  Receipt Date: 20110906
  Transmission Date: 20120825
  Serious: No
  Sender: FDA-Public Use
  Company Number: US-NOVEN-11US003155

PATIENT
  Age: 23 Year
  Sex: Female
  Weight: 63.492 kg

DRUGS (2)
  1. DAYTRANA [Suspect]
     Indication: ANXIETY
     Dosage: 1/2 20 MG, QD
     Route: 062
     Dates: start: 20110101
  2. DAYTRANA [Suspect]
     Indication: AFFECTIVE DISORDER
     Dosage: 10 MG, QD
     Route: 062
     Dates: start: 20110101

REACTIONS (5)
  - PRODUCT QUALITY ISSUE [None]
  - DRUG PRESCRIBING ERROR [None]
  - OFF LABEL USE [None]
  - APPLICATION SITE ERYTHEMA [None]
  - WRONG TECHNIQUE IN DRUG USAGE PROCESS [None]
